FAERS Safety Report 24641701 (Version 1)
Quarter: 2024Q4

REPORT INFORMATION
  Report Type: Other
  Country: US (occurrence: US)
  Receive Date: 20241120
  Receipt Date: 20241120
  Transmission Date: 20250114
  Serious: Yes (Hospitalization, Other)
  Sender: APPCO PHARMA LLC
  Company Number: US-Appco Pharma LLC-2165489

PATIENT
  Age: 7 Month
  Sex: Male

DRUGS (6)
  1. FLUOXETINE [Suspect]
     Active Substance: FLUOXETINE HYDROCHLORIDE
     Indication: Product used for unknown indication
  2. QUETIAPINE [Suspect]
     Active Substance: QUETIAPINE
  3. OXYCODONE [Suspect]
     Active Substance: OXYCODONE
  4. HYDROMORPHONE HYDROCHLORIDE [Suspect]
     Active Substance: HYDROMORPHONE HYDROCHLORIDE
  5. CLONAZEPAM [Suspect]
     Active Substance: CLONAZEPAM
  6. HEROIN [Suspect]
     Active Substance: DIAMORPHINE

REACTIONS (4)
  - Premature baby [Unknown]
  - Decerebrate posture [Unknown]
  - Neonatal behavioural syndrome [Unknown]
  - Foetal exposure during pregnancy [Unknown]
